FAERS Safety Report 9611526 (Version 1)
Quarter: 2013Q4

REPORT INFORMATION
  Report Type: Report from Study
  Country: IR (occurrence: IR)
  Receive Date: 20131010
  Receipt Date: 20131010
  Transmission Date: 20140711
  Serious: Yes (Other)
  Sender: FDA-Public Use
  Company Number: IR-ROCHE-1285624

PATIENT
  Sex: 0

DRUGS (3)
  1. CAPECITABINE [Suspect]
     Indication: ADENOCARCINOMA GASTRIC
     Dosage: TWO COURSES OF CHEMOTHERAPY WAS INITIATED THREE WEEKS APART.
     Route: 048
  2. DOCETAXEL [Suspect]
     Indication: ADENOCARCINOMA GASTRIC
     Dosage: TWO COURSES OF CHEMOTHERAPY WAS INITIATED THREE WEEKS APART.
     Route: 042
  3. OXALIPLATIN [Suspect]
     Indication: ADENOCARCINOMA GASTRIC
     Dosage: TWO COURSES OF CHEMOTHERAPY WAS INITIATED THREE WEEKS APART.
     Route: 042

REACTIONS (5)
  - Anaemia [Unknown]
  - Nausea [Unknown]
  - Vomiting [Unknown]
  - Palmar-plantar erythrodysaesthesia syndrome [Unknown]
  - Dysuria [Unknown]
